FAERS Safety Report 22967354 (Version 5)
Quarter: 2024Q3

REPORT INFORMATION
  Report Type: Spontaneous
  Country: US (occurrence: US)
  Receive Date: 20230921
  Receipt Date: 20240821
  Transmission Date: 20241017
  Serious: No
  Sender: PFIZER
  Company Number: US-PFIZER INC-PV202300157578

PATIENT
  Age: 71 Year
  Sex: Female

DRUGS (4)
  1. IBRANCE [Suspect]
     Active Substance: PALBOCICLIB
     Dosage: 100 MG
  2. IBRANCE [Suspect]
     Active Substance: PALBOCICLIB
     Dosage: EVERY (Q.) DAY FOR 3 WEEKS THEN HOLD 1 WEEK
     Route: 048
     Dates: start: 20240329, end: 202404
  3. IBRANCE [Suspect]
     Active Substance: PALBOCICLIB
     Dosage: EVERY (Q.) DAY FOR 3 WEEKS THEN HOLD 1 WEEK
     Route: 048
     Dates: start: 20240426
  4. IBRANCE [Suspect]
     Active Substance: PALBOCICLIB
     Dosage: EVERY DAY FOR 3 WEEKS THEN HOLD 1 WEEK
     Route: 048

REACTIONS (3)
  - Visual impairment [Unknown]
  - Fatigue [Unknown]
  - Thyroid disorder [Unknown]
